FAERS Safety Report 13904503 (Version 1)
Quarter: 2017Q3

REPORT INFORMATION
  Report Type: Spontaneous
  Country: US (occurrence: US)
  Receive Date: 20170824
  Receipt Date: 20170824
  Transmission Date: 20171127
  Serious: No
  Sender: FDA-Public Use
  Company Number: None

PATIENT

DRUGS (1)
  1. LEUCOVORIN. [Suspect]
     Active Substance: LEUCOVORIN

REACTIONS (3)
  - Pruritus [None]
  - Hypoaesthesia oral [None]
  - Flushing [None]

NARRATIVE: CASE EVENT DATE: 20170524
